FAERS Safety Report 8792984 (Version 1)
Quarter: 2012Q4

REPORT INFORMATION
  Report Type: Report from Study
  Country: DE (occurrence: DE)
  Receive Date: 20120918
  Receipt Date: 20120918
  Transmission Date: 20130627
  Serious: Yes (Death, Hospitalization)
  Sender: FDA-Public Use
  Company Number: DE-ACTELION-A-US2012-60202

PATIENT
  Age: 75 Year
  Sex: Male

DRUGS (2)
  1. VENTAVIS [Suspect]
     Indication: PULMONARY ARTERIAL HYPERTENSION
     Dosage: 2.5 ug, q4hrs
     Route: 055
     Dates: start: 20100614, end: 20120113
  2. VENTAVIS [Suspect]
     Dosage: 2.5 ug, q4hrs
     Route: 055
     Dates: end: 20120605

REACTIONS (3)
  - Death [Fatal]
  - Fluid retention [Not Recovered/Not Resolved]
  - Pneumonia [Unknown]
